FAERS Safety Report 9465538 (Version 1)
Quarter: 2013Q3

REPORT INFORMATION
  Report Type: Spontaneous
  Country: US (occurrence: US)
  Receive Date: 20130820
  Receipt Date: 20130820
  Transmission Date: 20140515
  Serious: No
  Sender: FDA-Public Use
  Company Number: US-TEVA-426703USA

PATIENT
  Sex: Male

DRUGS (2)
  1. AMRIX [Suspect]
     Indication: MUSCLE SPASMS
     Route: 048
     Dates: start: 20130812, end: 20130812
  2. XANAX [Concomitant]

REACTIONS (4)
  - Dizziness [Unknown]
  - Gait disturbance [Unknown]
  - Vision blurred [Unknown]
  - Fatigue [Unknown]
